FAERS Safety Report 21183807 (Version 1)
Quarter: 2022Q3

REPORT INFORMATION
  Report Type: Spontaneous
  Country: CA (occurrence: CA)
  Receive Date: 20220808
  Receipt Date: 20220808
  Transmission Date: 20221027
  Serious: Yes (Hospitalization, Other)
  Sender: FDA-Public Use
  Company Number: CA-BION-010883

PATIENT
  Age: 4 Decade

DRUGS (10)
  1. VALPROIC ACID [Suspect]
     Active Substance: VALPROIC ACID
     Indication: Generalised tonic-clonic seizure
     Route: 048
  2. ATORVASTATIN [Concomitant]
     Active Substance: ATORVASTATIN
  3. APIXABAN [Concomitant]
     Active Substance: APIXABAN
  4. TOPIRAMATE [Concomitant]
     Active Substance: TOPIRAMATE
  5. GABAPENTIN [Concomitant]
     Active Substance: GABAPENTIN
  6. PANTOPRAZOLE [Concomitant]
     Active Substance: PANTOPRAZOLE
  7. CALCIUM [Concomitant]
     Active Substance: CALCIUM
  8. PIPERACILLIN AND TAZOBACTAM [Concomitant]
     Active Substance: PIPERACILLIN SODIUM\TAZOBACTAM SODIUM
  9. VANCOMYCIN [Concomitant]
     Active Substance: VANCOMYCIN
  10. HYDROCORTISONE [Concomitant]
     Active Substance: HYDROCORTISONE

REACTIONS (8)
  - Hypoalbuminaemia [Recovered/Resolved]
  - Agitation [Recovered/Resolved]
  - Hypofibrinogenaemia [Recovered/Resolved]
  - Platelet count decreased [Recovered/Resolved]
  - Electrolyte imbalance [Unknown]
  - Colitis [Unknown]
  - Diverticulum intestinal [Unknown]
  - Protein-losing gastroenteropathy [Unknown]
